FAERS Safety Report 4779886-7 (Version None)
Quarter: 2005Q3

REPORT INFORMATION
  Report Type: 
  Country: None (occurrence: None)
  Receive Date: 20050914
  Receipt Date: 20050502
  Transmission Date: 20060218
  Serious: Yes (Hospitalization)
  Sender: FDA-Public Use
  Company Number: 163-20785-05050052

PATIENT
  Age: 70 Year
  Sex: Female

DRUGS (11)
  1. THALOMID [Suspect]
     Indication: MULTIPLE MYELOMA
     Dosage: 200 MG, DAILY, ORAL
     Dates: start: 20050330, end: 20050502
  2. ERYTHROPOIETIN (ERYTHROPOIETIN) [Concomitant]
  3. ATENOLOL [Concomitant]
  4. ZOMETA [Concomitant]
  5. DECADRON [Concomitant]
  6. FLUCONAZOLE [Concomitant]
  7. COUMADIN [Concomitant]
  8. DURAGESIC-100 [Concomitant]
  9. MEGACE [Concomitant]
  10. PROTONIX [Concomitant]
  11. FLUTAMIDE [Concomitant]

REACTIONS (2)
  - BONE PAIN [None]
  - DISEASE PROGRESSION [None]
